FAERS Safety Report 11861579 (Version 2)
Quarter: 2016Q1

REPORT INFORMATION
  Report Type: Spontaneous
  Country: JP (occurrence: JP)
  Receive Date: 20151222
  Receipt Date: 20160216
  Transmission Date: 20160526
  Serious: Yes (Death)
  Sender: FDA-Public Use
  Company Number: JP-JNJFOC-20151216930

PATIENT
  Age: 52 Year
  Sex: Male

DRUGS (9)
  1. STELARA [Suspect]
     Active Substance: USTEKINUMAB
     Indication: PSORIASIS
     Route: 058
     Dates: start: 20150518, end: 20150518
  2. GABALON [Concomitant]
     Active Substance: BACLOFEN
     Indication: SPINAL LIGAMENT OSSIFICATION
     Route: 048
     Dates: end: 20151216
  3. STELARA [Suspect]
     Active Substance: USTEKINUMAB
     Indication: PSORIASIS
     Route: 058
     Dates: start: 20150907, end: 20150907
  4. ACTOS [Concomitant]
     Active Substance: PIOGLITAZONE HYDROCHLORIDE
     Indication: TYPE 2 DIABETES MELLITUS
     Route: 048
     Dates: end: 20151216
  5. STELARA [Suspect]
     Active Substance: USTEKINUMAB
     Indication: PSORIASIS
     Route: 058
     Dates: start: 20150615, end: 20150615
  6. POLARAMINE [Concomitant]
     Active Substance: DEXCHLORPHENIRAMINE MALEATE
     Indication: PSORIASIS
     Route: 048
     Dates: start: 20140407, end: 20151216
  7. SALOBEL [Concomitant]
     Active Substance: ALLOPURINOL
     Indication: HYPERURICAEMIA
     Route: 048
  8. MEVALOTIN [Concomitant]
     Active Substance: PRAVASTATIN SODIUM
     Indication: DYSLIPIDAEMIA
     Route: 048
     Dates: end: 20151216
  9. TALION [Concomitant]
     Active Substance: BEPOTASTINE
     Indication: PSORIASIS
     Route: 048
     Dates: start: 20140407, end: 20151216

REACTIONS (2)
  - Interstitial lung disease [Fatal]
  - Pneumothorax [Fatal]

NARRATIVE: CASE EVENT DATE: 201510
